FAERS Safety Report 8925545 (Version 1)
Quarter: 2012Q4

REPORT INFORMATION
  Report Type: 
  Country: US (occurrence: US)
  Receive Date: 20121126
  Receipt Date: 20121126
  Transmission Date: 20130627
  Serious: Yes (Other)
  Sender: FDA-Public Use
  Company Number: CHPA2012US023466

PATIENT
  Age: 60 Year
  Sex: Female

DRUGS (2)
  1. MYOFLEX ANALGESIC CREME [Suspect]
     Indication: ARTHRITIS
     Dosage: UNK, as needed
     Route: 061
  2. MYOFLEX ANALGESIC CREME [Suspect]
     Dosage: UNK, daily

REACTIONS (4)
  - Bone disorder [Recovered/Resolved]
  - Off label use [Unknown]
  - Expired drug administered [Unknown]
  - Incorrect drug administration duration [Recovered/Resolved]
